FAERS Safety Report 21443594 (Version 1)
Quarter: 2022Q4

REPORT INFORMATION
  Report Type: Spontaneous
  Country: US (occurrence: US)
  Receive Date: 20221012
  Receipt Date: 20221012
  Transmission Date: 20230113
  Serious: No
  Sender: FDA-Public Use
  Company Number: US-drreddys-SPO/USA/22/0155244

PATIENT
  Age: 42 Year

DRUGS (2)
  1. ZENATANE [Suspect]
     Active Substance: ISOTRETINOIN
     Indication: Product used for unknown indication
     Dosage: RMA ISSUE DATE: 26 MAY 2022 11:46:38 AM, 21 JUNE 2022 05:19:15 PM AND 9 SEPTEMBER 2022 08:22:28 PM
  2. ZENATANE [Suspect]
     Active Substance: ISOTRETINOIN
     Dosage: RMA ISSUE DATE: 30 APRIL 2022 12:50:52 PM

REACTIONS (1)
  - Therapy non-responder [Unknown]
